FAERS Safety Report 20884848 (Version 1)
Quarter: 2022Q2

REPORT INFORMATION
  Report Type: Spontaneous
  Country: CH (occurrence: CH)
  Receive Date: 20220527
  Receipt Date: 20220527
  Transmission Date: 20220721
  Serious: Yes (Other)
  Sender: FDA-Public Use
  Company Number: CH-ELI_LILLY_AND_COMPANY-CH202203012461

PATIENT
  Age: 57 Year
  Sex: Male
  Weight: 102 kg

DRUGS (5)
  1. TALTZ [Suspect]
     Active Substance: IXEKIZUMAB
     Indication: Ankylosing spondylitis
     Dosage: 80 MG, MONTHLY (1/M)
     Route: 058
     Dates: start: 20220127, end: 20220224
  2. ALLOPURINOL [Concomitant]
     Active Substance: ALLOPURINOL
     Indication: Gout
     Dosage: 450 MG, DAILY
     Route: 048
     Dates: start: 2017
  3. ARCOXIA [Concomitant]
     Active Substance: ETORICOXIB
     Indication: Pain
     Dosage: 60 MG, DAILY
     Route: 048
     Dates: start: 20210406
  4. BISOPROLOL [Concomitant]
     Active Substance: BISOPROLOL
     Indication: Hypertrophic cardiomyopathy
     Dosage: 5 MG, DAILY
     Route: 048
     Dates: start: 2018
  5. BISOPROLOL [Concomitant]
     Active Substance: BISOPROLOL
     Indication: Atrial fibrillation

REACTIONS (1)
  - Penile ulceration [Recovered/Resolved with Sequelae]

NARRATIVE: CASE EVENT DATE: 20220215
